FAERS Safety Report 11303352 (Version 1)
Quarter: 2015Q3

REPORT INFORMATION
  Report Type: Spontaneous
  Country: US (occurrence: US)
  Receive Date: 20150723
  Receipt Date: 20150723
  Transmission Date: 20151125
  Serious: Yes (Other)
  Sender: FDA-Public Use
  Company Number: US-SHIRE-US201500063

PATIENT
  Age: 9 Year
  Sex: Male
  Weight: 25.4 kg

DRUGS (1)
  1. VYVANSE [Suspect]
     Active Substance: LISDEXAMFETAMINE DIMESYLATE
     Indication: PRODUCT USED FOR UNKNOWN INDICATION
     Dosage: 30 MG, UNKNOWN
     Route: 048

REACTIONS (4)
  - Hallucination, auditory [Unknown]
  - Sleep disorder [Unknown]
  - Hallucination, visual [Unknown]
  - Nausea [Unknown]

NARRATIVE: CASE EVENT DATE: 201412
